FAERS Safety Report 8844872 (Version 2)
Quarter: 2012Q4

REPORT INFORMATION
  Report Type: 
  Country: US (occurrence: US)
  Receive Date: 20121017
  Receipt Date: 20121024
  Transmission Date: 20130627
  Serious: Yes (Other)
  Sender: FDA-Public Use
  Company Number: US-VERTEX PHARMACEUTICAL INC.-2012-022530

PATIENT
  Sex: Female

DRUGS (7)
  1. VX-950 [Suspect]
     Indication: HEPATITIS C
     Dosage: 750 mg, tid
     Route: 048
     Dates: start: 20120924
  2. VX-950 [Suspect]
     Dosage: 750 mg, tid
     Route: 048
     Dates: start: 20120927
  3. PEGASYS [Suspect]
     Indication: HEPATITIS C
     Dosage: 180 ?g, weekly
     Route: 058
     Dates: start: 20120924
  4. PEGASYS [Suspect]
     Dosage: 180 ?g, weekly
     Route: 058
     Dates: start: 20120927
  5. RIBASPHERE [Suspect]
     Indication: HEPATITIS C
     Dosage: 600 mg, bid
     Route: 048
     Dates: start: 20120924
  6. RIBASPHERE [Suspect]
     Dosage: 400 mg, bid
     Route: 048
  7. RIBASPHERE [Suspect]
     Dosage: 600 mg, bid
     Route: 048
     Dates: start: 20120927

REACTIONS (4)
  - Anaemia [Unknown]
  - Feeling hot [Unknown]
  - Fatigue [Unknown]
  - Dysgeusia [Unknown]
